FAERS Safety Report 21368403 (Version 1)
Quarter: 2022Q3

REPORT INFORMATION
  Report Type: Spontaneous
  Country: US (occurrence: US)
  Receive Date: 20220923
  Receipt Date: 20220923
  Transmission Date: 20221026
  Serious: No
  Sender: FDA-Public Use
  Company Number: US-GLAXOSMITHKLINE-USCH2022034352

PATIENT
  Sex: Female

DRUGS (1)
  1. JUNIOR STRENGTH ADVIL [Suspect]
     Active Substance: IBUPROFEN
     Indication: Product used for unknown indication
     Dosage: UNK

REACTIONS (2)
  - Tongue discomfort [Unknown]
  - Throat irritation [Unknown]
